FAERS Safety Report 4636520-4 (Version None)
Quarter: 2005Q2

REPORT INFORMATION
  Report Type: 
  Country: None (occurrence: None)
  Receive Date: 20050414
  Receipt Date: 20050414
  Transmission Date: 20051028
  Serious: Yes (Life-Threatening, Hospitalization, Disabling)
  Sender: FDA-Public Use
  Company Number: None

PATIENT
  Age: 39 Year
  Sex: Female
  Weight: 65 kg

DRUGS (2)
  1. RELPAX [Suspect]
     Indication: MIGRAINE
     Dosage: ORAL
     Route: 048
  2. CORTISLIM [Suspect]
     Indication: WEIGHT CONTROL
     Dosage: ORAL
     Route: 048

REACTIONS (5)
  - HEADACHE [None]
  - HYPOAESTHESIA [None]
  - PARAESTHESIA [None]
  - PERSONALITY CHANGE [None]
  - VOMITING [None]
